FAERS Safety Report 14225006 (Version 1)
Quarter: 2017Q4

REPORT INFORMATION
  Report Type: Spontaneous
  Country: US (occurrence: None)
  Receive Date: 20171122
  Receipt Date: 20171122
  Transmission Date: 20180321
  Serious: Yes (Hospitalization)
  Sender: FDA-Public Use
  Company Number: None

PATIENT
  Age: 85 Year
  Sex: Female

DRUGS (1)
  1. CAPECITABINE MYLAN [Suspect]
     Active Substance: CAPECITABINE
     Indication: BREAST CANCER
     Dosage: 1500MG BID PO X7 DAYS ON /7 DAYS OFF
     Route: 048
     Dates: start: 20170923

REACTIONS (2)
  - Drug dose omission [None]
  - Malaise [None]

NARRATIVE: CASE EVENT DATE: 201711
